FAERS Safety Report 15701975 (Version 1)
Quarter: 2018Q4

REPORT INFORMATION
  Report Type: Spontaneous
  Country: IL (occurrence: IL)
  Receive Date: 20181209
  Receipt Date: 20181209
  Transmission Date: 20190205
  Serious: Yes (Other)
  Sender: FDA-Public Use
  Company Number: IL-ROCHE-2223563

PATIENT
  Age: 74 Year
  Sex: Female

DRUGS (2)
  1. AVASTIN [Suspect]
     Active Substance: BEVACIZUMAB
     Indication: OVARIAN CANCER
     Dosage: 100MG/4ML
     Route: 042
     Dates: start: 20150721, end: 20170321
  2. CARBOPLATIN. [Suspect]
     Active Substance: CARBOPLATIN
     Indication: OVARIAN CANCER
     Route: 065

REACTIONS (10)
  - Fatigue [Unknown]
  - Pain in extremity [Unknown]
  - Blood glucose increased [Unknown]
  - Hernia [Unknown]
  - Neck pain [Unknown]
  - Dizziness [Unknown]
  - Asthenia [Unknown]
  - Paraesthesia [Unknown]
  - Pancytopenia [Unknown]
  - Abdominal pain [Unknown]

NARRATIVE: CASE EVENT DATE: 20180621
